FAERS Safety Report 12697775 (Version 1)
Quarter: 2016Q3

REPORT INFORMATION
  Report Type: Spontaneous
  Country: US (occurrence: None)
  Receive Date: 20160829
  Receipt Date: 20160829
  Transmission Date: 20161109
  Serious: No
  Sender: FDA-Public Use
  Company Number: None

PATIENT
  Age: 55 Year
  Sex: Female

DRUGS (1)
  1. TRAMADOL, 50MG NORTHSTAR [Suspect]
     Active Substance: TRAMADOL
     Indication: PRODUCT USED FOR UNKNOWN INDICATION
     Route: 048
     Dates: start: 20160810, end: 20160823

REACTIONS (4)
  - Product quality issue [None]
  - Dizziness [None]
  - Headache [None]
  - Dry eye [None]

NARRATIVE: CASE EVENT DATE: 20160810
